FAERS Safety Report 11548315 (Version 1)
Quarter: 2015Q3

REPORT INFORMATION
  Report Type: Spontaneous
  Country: US (occurrence: US)
  Receive Date: 20150924
  Receipt Date: 20150924
  Transmission Date: 20151125
  Serious: Yes (Other)
  Sender: FDA-Public Use
  Company Number: US-BAYER-2015-424330

PATIENT

DRUGS (1)
  1. BAYER GENUINE ASPIRIN [Suspect]
     Active Substance: ASPIRIN
     Indication: CARDIOVASCULAR EVENT PROPHYLAXIS

REACTIONS (6)
  - Asthenia [None]
  - Intentional product use issue [None]
  - Full blood count decreased [None]
  - Self-medication [None]
  - Gastrointestinal ulcer haemorrhage [None]
  - Faeces discoloured [None]
